FAERS Safety Report 14256190 (Version 1)
Quarter: 2017Q4

REPORT INFORMATION
  Report Type: Spontaneous
  Country: US (occurrence: US)
  Receive Date: 20171206
  Receipt Date: 20171206
  Transmission Date: 20180321
  Serious: No
  Sender: FDA-Public Use
  Company Number: US-ASTRAZENECA-2017SF17160

PATIENT
  Age: 23072 Day
  Sex: Female
  Weight: 71.2 kg

DRUGS (1)
  1. BYDUREON [Suspect]
     Active Substance: EXENATIDE
     Indication: TYPE 2 DIABETES MELLITUS
     Route: 058
     Dates: start: 20171004

REACTIONS (2)
  - Injection site nodule [Unknown]
  - Skin mass [Unknown]

NARRATIVE: CASE EVENT DATE: 20171005
